FAERS Safety Report 4482039-3 (Version None)
Quarter: 2004Q4

REPORT INFORMATION
  Report Type: 
  Country: None (occurrence: None)
  Receive Date: 20041020
  Receipt Date: 20041020
  Transmission Date: 20050328
  Serious: No
  Sender: FDA-Public Use
  Company Number: None

PATIENT
  Age: 27 Year
  Sex: Female
  Weight: 68.0396 kg

DRUGS (8)
  1. MONISTAT 1 COMBINATION PACK [Suspect]
     Indication: DISCOMFORT
     Dosage: 1 DOSE 1 APPLICATION VAGINAL
     Route: 067
     Dates: start: 20041018, end: 20041018
  2. MONISTAT 1 COMBINATION PACK [Suspect]
     Indication: DYSURIA
     Dosage: 1 DOSE 1 APPLICATION VAGINAL
     Route: 067
     Dates: start: 20041018, end: 20041018
  3. MONISTAT 1 COMBINATION PACK [Suspect]
     Indication: PRURITUS
     Dosage: 1 DOSE 1 APPLICATION VAGINAL
     Route: 067
     Dates: start: 20041018, end: 20041018
  4. MONISTAT 1 COMBINATION PACK [Suspect]
     Indication: SECRETION DISCHARGE
     Dosage: 1 DOSE 1 APPLICATION VAGINAL
     Route: 067
     Dates: start: 20041018, end: 20041018
  5. MONISTAT 1 COMBINATION PACK [Suspect]
     Indication: SKIN IRRITATION
     Dosage: 1 DOSE 1 APPLICATION VAGINAL
     Route: 067
     Dates: start: 20041018, end: 20041018
  6. MONISTAT 1 COMBINATION PACK [Suspect]
     Indication: ERYTHEMA
     Dosage: AS NEEDED  AS NEEDED  VAGINAL
     Route: 067
     Dates: start: 20041018, end: 20041019
  7. MONISTAT 1 COMBINATION PACK [Suspect]
     Indication: PRURITUS
     Dosage: AS NEEDED  AS NEEDED  VAGINAL
     Route: 067
     Dates: start: 20041018, end: 20041019
  8. MONISTAT 1 COMBINATION PACK [Suspect]
     Indication: SKIN IRRITATION
     Dosage: AS NEEDED  AS NEEDED  VAGINAL
     Route: 067
     Dates: start: 20041018, end: 20041019

REACTIONS (2)
  - CONDITION AGGRAVATED [None]
  - FUNGAL INFECTION [None]
